FAERS Safety Report 8307262-9 (Version None)
Quarter: 2012Q2

REPORT INFORMATION
  Report Type: 
  Country: None (occurrence: None)
  Receive Date: 20120424
  Receipt Date: 20120416
  Transmission Date: 20120825
  Serious: Yes (Hospitalization)
  Sender: FDA-Public Use
  Company Number: US-BAYER-2011-115469

PATIENT
  Age: 19 Year
  Sex: Female
  Weight: 63.492 kg

DRUGS (6)
  1. PROMETHAZINE [Concomitant]
     Indication: MULTIPLE ALLERGIES
     Dosage: 25 MG, UNK
     Route: 048
     Dates: start: 20061114
  2. BROVEX [Concomitant]
     Indication: NASAL CONGESTION
     Dosage: UNK
     Route: 048
     Dates: start: 20060824
  3. YASMIN [Suspect]
     Indication: CONTRACEPTION
     Dosage: UNK
     Route: 048
     Dates: start: 20040301, end: 20080601
  4. SULFAMETHOXAZOLE [Concomitant]
     Dosage: UNK UNK, BID
     Route: 048
     Dates: start: 20060824
  5. PAXIL [Concomitant]
     Indication: ANXIETY
     Dosage: 20 MG, UNK
     Route: 048
     Dates: start: 20060101
  6. PRILOSEC [Concomitant]
     Dosage: UNK UNK, QD
     Route: 048
     Dates: start: 20061016

REACTIONS (3)
  - CHOLECYSTITIS [None]
  - INJURY [None]
  - PAIN [None]
